FAERS Safety Report 24643003 (Version 1)
Quarter: 2024Q4

REPORT INFORMATION
  Report Type: Spontaneous
  Country: US (occurrence: US)
  Receive Date: 20241120
  Receipt Date: 20241120
  Transmission Date: 20250114
  Serious: No
  Sender: MERCK
  Company Number: US-009507513-2411USA006753

PATIENT
  Sex: Male

DRUGS (1)
  1. VERQUVO [Suspect]
     Active Substance: VERICIGUAT
     Dosage: 2.5MG ONCE DAILY
     Route: 048
     Dates: end: 2024

REACTIONS (3)
  - Cough [Unknown]
  - Pruritus [Unknown]
  - Hypersensitivity [Unknown]
